FAERS Safety Report 8793966 (Version 1)
Quarter: 2012Q4

REPORT INFORMATION
  Report Type: 
  Country: ES (occurrence: FR)
  Receive Date: 20120917
  Receipt Date: 20120917
  Transmission Date: 20130627
  Serious: Yes (Life-Threatening, Hospitalization, Other)
  Sender: FDA-Public Use
  Company Number: PHHY2012FR079810

PATIENT
  Age: 75 Year
  Sex: Male

DRUGS (10)
  1. GLIVEC [Suspect]
     Indication: CHRONIC MYELOID LEUKAEMIA
     Dosage: UNK UKN, UNK
     Route: 048
     Dates: start: 2005, end: 201002
  2. SPRYCEL [Suspect]
     Dosage: 100 mg, Daily
     Route: 048
     Dates: start: 20100215, end: 20100228
  3. PRAVASTATIN SODIUM [Concomitant]
     Dosage: UNK ug/kg, UNK
  4. COLCHICINE [Concomitant]
     Dosage: UNK UKN, UNK
  5. KARDEGIC [Concomitant]
     Dosage: UNK UKN, UNK
  6. COVERSYL [Concomitant]
     Dosage: UNK UKN, UNK
  7. ALLOPURINOL [Concomitant]
     Dosage: UNK UKN, UNK
  8. OMEPRAZOLE [Concomitant]
     Dosage: UNK UKN, UNK
  9. PROCORALAN [Concomitant]
     Dosage: UNK UKN, UNK
  10. TENSTATEN [Concomitant]
     Dosage: UNK UKN, UNK

REACTIONS (11)
  - Interstitial lung disease [Recovered/Resolved with Sequelae]
  - Cough [Recovered/Resolved with Sequelae]
  - Dyspnoea [Recovered/Resolved with Sequelae]
  - Hypoxia [Recovered/Resolved with Sequelae]
  - Lung infection [Recovered/Resolved]
  - Pallor [Recovered/Resolved with Sequelae]
  - Pyrexia [Recovered/Resolved with Sequelae]
  - General physical health deterioration [Recovered/Resolved with Sequelae]
  - Haemoglobin decreased [Recovered/Resolved]
  - Prothrombin time prolonged [None]
  - Prostatic specific antigen increased [None]
